FAERS Safety Report 9847399 (Version 3)
Quarter: 2014Q3

REPORT INFORMATION
  Report Type: Report from Study
  Country: BR (occurrence: BR)
  Receive Date: 20140127
  Receipt Date: 20140902
  Transmission Date: 20150326
  Serious: Yes (Hospitalization, Other)
  Sender: FDA-Public Use
  Company Number: BR-ABBVIE-14P-020-1193011-00

PATIENT
  Age: 36 Year
  Sex: Male
  Weight: 49 kg

DRUGS (9)
  1. AZATHIOPRINE. [Concomitant]
     Active Substance: AZATHIOPRINE
     Route: 048
  2. OMEPRAZOLE. [Concomitant]
     Active Substance: OMEPRAZOLE
     Indication: GASTRIC DISORDER
     Route: 048
     Dates: start: 2011
  3. HUMIRA [Suspect]
     Active Substance: ADALIMUMAB
     Indication: CROHN^S DISEASE
     Route: 058
  4. HUMIRA [Suspect]
     Active Substance: ADALIMUMAB
     Route: 058
     Dates: start: 20140310, end: 20140310
  5. PREDNISONE. [Concomitant]
     Active Substance: PREDNISONE
     Indication: INFLAMMATION
     Route: 048
     Dates: start: 20131001
  6. HUMIRA [Suspect]
     Active Substance: ADALIMUMAB
     Route: 058
  7. HUMIRA [Suspect]
     Active Substance: ADALIMUMAB
     Route: 058
  8. AZATHIOPRINE. [Concomitant]
     Active Substance: AZATHIOPRINE
     Indication: IMMUNOSUPPRESSION
     Route: 048
     Dates: start: 2011
  9. PREDNISONE. [Concomitant]
     Active Substance: PREDNISONE
     Indication: ADRENOCORTICAL STEROID THERAPY

REACTIONS (9)
  - Hypophagia [Recovered/Resolved]
  - Immunodeficiency [Unknown]
  - Crohn^s disease [Unknown]
  - Pyrexia [Unknown]
  - Haemorrhage [Unknown]
  - Abscess [Unknown]
  - Abdominal abscess [Recovered/Resolved]
  - Pyrexia [Recovered/Resolved]
  - Flatulence [Unknown]

NARRATIVE: CASE EVENT DATE: 20130901
